FAERS Safety Report 20554937 (Version 2)
Quarter: 2023Q1

REPORT INFORMATION
  Report Type: Report from Study
  Country: CA (occurrence: CA)
  Receive Date: 20220304
  Receipt Date: 20230216
  Transmission Date: 20230417
  Serious: Yes (Other)
  Sender: FDA-Public Use
  Company Number: CA-PFIZER INC-202200327018

PATIENT
  Age: 71 Year
  Sex: Female

DRUGS (2)
  1. FLUCONAZOLE [Suspect]
     Active Substance: FLUCONAZOLE
     Indication: Candida infection
     Dosage: 200 MG, DAILY
     Route: 048
  2. NYSTATIN [Concomitant]
     Active Substance: NYSTATIN
     Indication: Candida infection
     Dosage: 4 DF, 1X/DAY
     Route: 065

REACTIONS (11)
  - Drug ineffective [Unknown]
  - Anxiety [Unknown]
  - Chronic spontaneous urticaria [Unknown]
  - Headache [Unknown]
  - Illness [Unknown]
  - Insomnia [Unknown]
  - Malaise [Unknown]
  - Pruritus [Unknown]
  - Urticaria [Unknown]
  - Bone cancer [Unknown]
  - Immune system disorder [Unknown]
